FAERS Safety Report 11788075 (Version 1)
Quarter: 2015Q4

REPORT INFORMATION
  Report Type: Report from Study
  Country: BR (occurrence: BR)
  Receive Date: 20151130
  Receipt Date: 20151130
  Transmission Date: 20160305
  Serious: Yes (Hospitalization, Other)
  Sender: FDA-Public Use
  Company Number: BR-ROCHE-1619337

PATIENT
  Sex: Female
  Weight: 103 kg

DRUGS (6)
  1. CIMELIDE [Concomitant]
     Active Substance: NIMESULIDE
     Indication: ARTHRALGIA
     Route: 065
  2. CORTISONE [Suspect]
     Active Substance: CORTISONE\HYDROCORTISONE
     Indication: PRODUCT USED FOR UNKNOWN INDICATION
     Route: 065
  3. CODATEN [Concomitant]
     Active Substance: CODEINE PHOSPHATE\DICLOFENAC SODIUM
  4. ACTEMRA [Suspect]
     Active Substance: TOCILIZUMAB
     Indication: RHEUMATOID ARTHRITIS
     Dosage: 10 AMPULES
     Route: 042
     Dates: start: 20150423
  5. KETOROLAC [Concomitant]
     Active Substance: KETOROLAC\KETOROLAC TROMETHAMINE
     Indication: ARTHRALGIA
     Route: 065
  6. PROFENID [Concomitant]
     Active Substance: KETOPROFEN

REACTIONS (10)
  - Glucose tolerance impaired [Unknown]
  - Inflammation [Unknown]
  - Abdominal pain upper [Unknown]
  - Blood pressure abnormal [Unknown]
  - Vomiting [Unknown]
  - Joint range of motion decreased [Unknown]
  - Rheumatoid nodule [Unknown]
  - Arthropathy [Unknown]
  - Oesophagitis [Unknown]
  - Influenza [Unknown]
